FAERS Safety Report 20650169 (Version 1)
Quarter: 2022Q1

REPORT INFORMATION
  Report Type: Spontaneous
  Country: US (occurrence: US)
  Receive Date: 20220329
  Receipt Date: 20220329
  Transmission Date: 20220423
  Serious: No
  Sender: FDA-Public Use
  Company Number: US-AVEO ONCOLOGY-2022-AVEO-US000040

PATIENT

DRUGS (1)
  1. FOTIVDA [Suspect]
     Active Substance: TIVOZANIB HYDROCHLORIDE
     Indication: Renal cell carcinoma
     Dosage: 0.89 MG, DAILY ON DAYS 1-21, EVERY 28 DAYS
     Route: 048
     Dates: start: 20220126, end: 20220131

REACTIONS (2)
  - Pain in extremity [Not Recovered/Not Resolved]
  - Paraesthesia [Unknown]
